FAERS Safety Report 17639259 (Version 1)
Quarter: 2020Q2

REPORT INFORMATION
  Report Type: Report from Study
  Country: US (occurrence: US)
  Receive Date: 20200407
  Receipt Date: 20200407
  Transmission Date: 20200713
  Serious: Yes (Death, Hospitalization)
  Sender: FDA-Public Use
  Company Number: US-ACTELION-A-US2018-184312

PATIENT
  Age: 15 Year
  Sex: Male

DRUGS (2)
  1. TADALAFIL. [Concomitant]
     Active Substance: TADALAFIL
  2. OPSUMIT [Suspect]
     Active Substance: MACITENTAN
     Indication: PULMONARY ARTERIAL HYPERTENSION
     Dosage: 10 MG, QD
     Route: 048
     Dates: start: 20181003

REACTIONS (5)
  - Malaise [Unknown]
  - Dizziness [Unknown]
  - Product dose omission [Unknown]
  - Protein-losing gastroenteropathy [Unknown]
  - Death [Fatal]

NARRATIVE: CASE EVENT DATE: 201811
